FAERS Safety Report 8243148-6 (Version None)
Quarter: 2012Q1

REPORT INFORMATION
  Report Type: 
  Country: None (occurrence: None)
  Receive Date: 20120329
  Receipt Date: 20120319
  Transmission Date: 20120608
  Serious: Yes (Other)
  Sender: FDA-Public Use
  Company Number: CA-JNJFOC-20120309453

PATIENT
  Sex: Male
  Weight: 86.18 kg

DRUGS (1)
  1. REMICADE [Suspect]
     Indication: ANKYLOSING SPONDYLITIS
     Route: 042
     Dates: end: 20120213

REACTIONS (4)
  - OROPHARYNGEAL PAIN [None]
  - ARTERIOSCLEROSIS [None]
  - INFECTION [None]
  - NASOPHARYNGITIS [None]
